FAERS Safety Report 17032356 (Version 1)
Quarter: 2019Q4

REPORT INFORMATION
  Report Type: Spontaneous
  Country: US (occurrence: US)
  Receive Date: 20191014
  Receipt Date: 20191014
  Transmission Date: 20200122
  Serious: No
  Sender: FDA-Public Use
  Company Number: None

PATIENT
  Age: 78 Year
  Sex: Female
  Weight: 91.63 kg

DRUGS (4)
  1. CLOBETASOL PROPIONATE 0.05% [Suspect]
     Active Substance: CLOBETASOL PROPIONATE
     Indication: SYSTEMIC LUPUS ERYTHEMATOSUS
     Dosage: MASSAGE 10 TO 12 DROPS ON SCALP MONDAY WED AND FRIDAY AS DIRECTED
     Dates: start: 201909
  2. H.P. ACTHAR [Suspect]
     Active Substance: CORTICOTROPIN
     Indication: CUTANEOUS LUPUS ERYTHEMATOSUS
  3. H.P. ACTHAR [Suspect]
     Active Substance: CORTICOTROPIN
     Indication: SYSTEMIC LUPUS ERYTHEMATOSUS
     Dosage: INJECT 80 UNITS (1 ML) SUBCUTANEOUSLY TWO TIMES A WEEK AS DIRECTED
     Route: 058
     Dates: start: 201811
  4. CLOBETASOL PROPIONATE 0.5% [Suspect]
     Active Substance: CLOBETASOL PROPIONATE
     Indication: CUTANEOUS LUPUS ERYTHEMATOSUS

REACTIONS (2)
  - Abdominal discomfort [None]
  - Blood pressure increased [None]
